FAERS Safety Report 17609521 (Version 1)
Quarter: 2020Q2

REPORT INFORMATION
  Report Type: Spontaneous
  Country: CN (occurrence: CN)
  Receive Date: 20200401
  Receipt Date: 20200401
  Transmission Date: 20200713
  Serious: Yes (Other)
  Sender: FDA-Public Use
  Company Number: CN-PFIZER INC-2020129863

PATIENT
  Age: 23 Year
  Sex: Female

DRUGS (1)
  1. AZITHROMYCIN ANHYDROUS. [Suspect]
     Active Substance: AZITHROMYCIN ANHYDROUS
     Indication: ANTI-INFECTIVE THERAPY
     Dosage: 0.500 G, 1X/DAY
     Route: 041
     Dates: start: 20200313, end: 20200315

REACTIONS (7)
  - Heart rate decreased [Recovering/Resolving]
  - Temperature intolerance [Recovering/Resolving]
  - Cyanosis [Recovering/Resolving]
  - Tachypnoea [Recovering/Resolving]
  - Feeling cold [Recovering/Resolving]
  - Pyrexia [Recovering/Resolving]
  - Chills [Recovering/Resolving]

NARRATIVE: CASE EVENT DATE: 20200315
